FAERS Safety Report 16166882 (Version 7)
Quarter: 2021Q3

REPORT INFORMATION
  Report Type: Spontaneous
  Country: JP (occurrence: JP)
  Receive Date: 20190408
  Receipt Date: 20210910
  Transmission Date: 20211014
  Serious: Yes (Death, Other)
  Sender: FDA-Public Use
  Company Number: JP-BRISTOL-MYERS SQUIBB COMPANY-BMS-2019-032237

PATIENT
  Age: 55 Year
  Sex: Male
  Weight: 45.1 kg

DRUGS (5)
  1. YERVOY [Suspect]
     Active Substance: IPILIMUMAB
     Indication: METASTATIC RENAL CELL CARCINOMA
     Dosage: 1 MILLIGRAM/KILOGRAM
     Route: 041
     Dates: start: 20190116, end: 20190116
  2. OPDIVO [Suspect]
     Active Substance: NIVOLUMAB
     Indication: METASTATIC RENAL CELL CARCINOMA
     Dosage: 240 MILLIGRAM
     Route: 041
     Dates: start: 20190116, end: 20190116
  3. TAMIFLU [Concomitant]
     Active Substance: OSELTAMIVIR PHOSPHATE
     Indication: ANTIVIRAL PROPHYLAXIS
     Dosage: UNK
     Route: 065
     Dates: start: 20190120
  4. RINDERON [BETAMETHASONE SODIUM PHOSPHATE] [Concomitant]
     Active Substance: BETAMETHASONE SODIUM PHOSPHATE
     Indication: TUMOUR ASSOCIATED FEVER
     Dosage: 2 MILLIGRAM
     Route: 048
     Dates: start: 20190125
  5. ZOMETA [Concomitant]
     Active Substance: ZOLEDRONIC ACID
     Indication: PRODUCT USED FOR UNKNOWN INDICATION
     Dosage: 4 MG/100 ML (SINGLE DOSE)
     Route: 065
     Dates: start: 20190130, end: 20190130

REACTIONS (5)
  - Tumour lysis syndrome [Recovering/Resolving]
  - Hypercalcaemia [Recovering/Resolving]
  - Cardiac failure [Fatal]
  - Malignant neoplasm progression [Fatal]
  - Delirium [Recovering/Resolving]

NARRATIVE: CASE EVENT DATE: 20190130
